FAERS Safety Report 25924239 (Version 1)
Quarter: 2025Q4

REPORT INFORMATION
  Report Type: Spontaneous
  Country: US (occurrence: US)
  Receive Date: 20251015
  Receipt Date: 20251015
  Transmission Date: 20260117
  Serious: Yes (Other)
  Sender: DR REDDYS
  Company Number: US-DRL-USA-USA/2025/10/015373

PATIENT
  Age: 77 Year
  Sex: Male
  Weight: 180 kg

DRUGS (3)
  1. FLUOROURACIL [Suspect]
     Active Substance: FLUOROURACIL
     Indication: Precancerous condition
     Dosage: FOR ABOUT TWO WEEKS
     Dates: end: 20251002
  2. VALSARTAN [Concomitant]
     Active Substance: VALSARTAN
     Indication: Blood pressure measurement
  3. METOPROLOL [Concomitant]
     Active Substance: METOPROLOL
     Indication: Blood pressure measurement

REACTIONS (16)
  - Cardiac flutter [Recovering/Resolving]
  - Hypertension [Unknown]
  - Musculoskeletal stiffness [Unknown]
  - Pain in extremity [Unknown]
  - Asthenopia [Unknown]
  - Soft tissue injury [Unknown]
  - Haemorrhage [Unknown]
  - Headache [Unknown]
  - Tachycardia [Unknown]
  - Balance disorder [Unknown]
  - Influenza [Unknown]
  - Dizziness [Unknown]
  - Asthenia [Unknown]
  - Hypotension [Unknown]
  - Toothache [Unknown]
  - Pain [Unknown]
